FAERS Safety Report 9894274 (Version 1)
Quarter: 2014Q1

REPORT INFORMATION
  Report Type: Spontaneous
  Country: US (occurrence: US)
  Receive Date: 20140213
  Receipt Date: 20140213
  Transmission Date: 20141002
  Serious: Yes (Other)
  Sender: FDA-Public Use
  Company Number: US-GLAXOSMITHKLINE-A1060872A

PATIENT
  Age: 63 Year
  Sex: Female

DRUGS (1)
  1. TYKERB [Suspect]
     Indication: NEOPLASM MALIGNANT
     Dosage: 250MG UNKNOWN
     Route: 065
     Dates: start: 20110602

REACTIONS (2)
  - Neoplasm malignant [Not Recovered/Not Resolved]
  - Mobility decreased [Not Recovered/Not Resolved]
